FAERS Safety Report 11809130 (Version 1)
Quarter: 2015Q4

REPORT INFORMATION
  Report Type: Report from Study
  Country: BR (occurrence: BR)
  Receive Date: 20151207
  Receipt Date: 20151207
  Transmission Date: 20160305
  Serious: Yes (Other)
  Sender: FDA-Public Use
  Company Number: ALCN2015BR007466

PATIENT
  Age: 75 Year
  Sex: Male
  Weight: 89 kg

DRUGS (1)
  1. AZOPT [Suspect]
     Active Substance: BRINZOLAMIDE
     Indication: INTRAOCULAR PRESSURE INCREASED
     Dosage: UNK GTT, BID
     Route: 047

REACTIONS (3)
  - Retinal artery occlusion [Recovered/Resolved]
  - Visual acuity reduced [Recovered/Resolved]
  - Visual impairment [Recovered/Resolved]

NARRATIVE: CASE EVENT DATE: 20110907
